FAERS Safety Report 8484332-6 (Version None)
Quarter: 2012Q3

REPORT INFORMATION
  Report Type: 
  Country: None (occurrence: None)
  Receive Date: 20120703
  Receipt Date: 20120626
  Transmission Date: 20120928
  Serious: Yes (Hospitalization, Other)
  Sender: FDA-Public Use
  Company Number: PHHY2012FR055959

PATIENT
  Age: 60 Year
  Sex: Male

DRUGS (6)
  1. MICROPAKINE [Concomitant]
  2. AMLODIPINE BESYLATE [Concomitant]
  3. ACETAMINOPHEN [Concomitant]
  4. FRAGMIN [Concomitant]
  5. TEGRETOL [Suspect]
     Indication: POST-TRAUMATIC EPILEPSY
     Dosage: 400 MG, BID
     Route: 048
  6. NEXIUM [Concomitant]

REACTIONS (3)
  - EPILEPSY [None]
  - HYPONATRAEMIA [None]
  - CEREBRAL HAEMATOMA [None]
